FAERS Safety Report 18450346 (Version 2)
Quarter: 2021Q4

REPORT INFORMATION
  Report Type: Spontaneous
  Country: US (occurrence: US)
  Receive Date: 20201031
  Receipt Date: 20211227
  Transmission Date: 20220304
  Serious: Yes (Other)
  Sender: FDA-Public Use
  Company Number: US-NAPPMUNDI-USA-2020-0153592

PATIENT
  Sex: Male

DRUGS (1)
  1. OXYCONTIN [Suspect]
     Active Substance: OXYCODONE HYDROCHLORIDE
     Indication: Product used for unknown indication
     Dosage: 40 MG, TWICE
     Route: 048

REACTIONS (5)
  - Drug dependence [Unknown]
  - Constipation [Unknown]
  - Depression [Unknown]
  - Sluggishness [Unknown]
  - Thinking abnormal [Unknown]
